FAERS Safety Report 4862768-X (Version None)
Quarter: 2005Q4

REPORT INFORMATION
  Report Type: 
  Country: None (occurrence: None)
  Receive Date: 20051221
  Receipt Date: 20051214
  Transmission Date: 20060501
  Serious: Yes (Life-Threatening, Hospitalization)
  Sender: FDA-Public Use
  Company Number: JP-JNJFOC-20050904628

PATIENT
  Sex: Male

DRUGS (41)
  1. RISPERDAL [Suspect]
     Route: 048
  2. RISPERDAL [Suspect]
     Indication: MENTAL DISORDER
     Route: 048
  3. HALOPERIDOL [Suspect]
     Route: 048
  4. HALOPERIDOL [Suspect]
     Route: 048
  5. HALOPERIDOL [Suspect]
     Route: 048
  6. HALOPERIDOL [Suspect]
     Route: 048
  7. HALOPERIDOL [Suspect]
     Route: 048
  8. HALOPERIDOL [Suspect]
     Route: 048
  9. HALOPERIDOL [Suspect]
     Route: 048
  10. HALOPERIDOL [Suspect]
     Route: 048
  11. HALOPERIDOL [Suspect]
     Route: 048
  12. HALOPERIDOL [Suspect]
     Indication: MENTAL DISORDER
     Route: 048
  13. OLANZAPINE [Suspect]
     Route: 048
  14. OLANZAPINE [Suspect]
     Route: 048
  15. OLANZAPINE [Suspect]
     Indication: MENTAL DISORDER
     Route: 048
  16. CARBAMAZEPINE [Concomitant]
     Route: 048
  17. CARBAMAZEPINE [Concomitant]
     Route: 048
  18. CARBAMAZEPINE [Concomitant]
     Route: 048
  19. CARBAMAZEPINE [Concomitant]
     Route: 048
  20. CARBAMAZEPINE [Concomitant]
     Route: 048
  21. CARBAMAZEPINE [Concomitant]
     Route: 048
  22. CARBAMAZEPINE [Concomitant]
     Route: 048
  23. CARBAMAZEPINE [Concomitant]
     Route: 048
  24. CARBAMAZEPINE [Concomitant]
     Indication: MENTAL DISORDER
     Route: 048
  25. BIPERIDEN HYDROCHLORIDE TAB [Concomitant]
     Route: 048
  26. BIPERIDEN HYDROCHLORIDE TAB [Concomitant]
     Route: 048
  27. BIPERIDEN HYDROCHLORIDE TAB [Concomitant]
     Route: 048
  28. BIPERIDEN HYDROCHLORIDE TAB [Concomitant]
     Indication: MENTAL DISORDER
     Route: 048
  29. DIAZEPAM [Concomitant]
     Route: 048
  30. DIAZEPAM [Concomitant]
     Route: 048
  31. DIAZEPAM [Concomitant]
     Indication: MENTAL DISORDER
     Route: 048
  32. NITRAZEPAM [Concomitant]
     Route: 048
  33. NITRAZEPAM [Concomitant]
     Indication: MENTAL DISORDER
     Route: 048
  34. ZOPICLONE [Concomitant]
     Route: 048
  35. ZOPICLONE [Concomitant]
     Indication: MENTAL DISORDER
     Route: 048
  36. LORAZEPAM [Concomitant]
     Route: 048
  37. LORAZEPAM [Concomitant]
     Indication: MENTAL DISORDER
     Route: 048
  38. LOXOPROFEN SODIUM [Concomitant]
     Route: 048
  39. LOXOPROFEN SODIUM [Concomitant]
     Route: 048
  40. REBAMIPIDE [Concomitant]
     Route: 048
  41. REBAMIPIDE [Concomitant]
     Route: 048

REACTIONS (2)
  - RENAL FAILURE ACUTE [None]
  - RHABDOMYOLYSIS [None]
